FAERS Safety Report 24234098 (Version 1)
Quarter: 2024Q3

REPORT INFORMATION
  Report Type: Spontaneous
  Country: IN (occurrence: IN)
  Receive Date: 20240821
  Receipt Date: 20240821
  Transmission Date: 20241017
  Serious: Yes (Other)
  Sender: NOVARTIS
  Company Number: IN-SANDOZ-SDZ2024IN023443

PATIENT
  Sex: Male

DRUGS (2)
  1. TACROLIMUS [Suspect]
     Active Substance: TACROLIMUS
     Indication: Renal transplant
     Dosage: 3 MG, QD (1.5 MG, BID)
     Route: 048
     Dates: start: 20220911
  2. MYFORTIC [Suspect]
     Active Substance: MYCOPHENOLATE SODIUM
     Indication: Renal transplant
     Dosage: 720 MG, QD (360 MG, BID)
     Route: 065
     Dates: start: 20220911

REACTIONS (6)
  - Cataract [Unknown]
  - Glaucoma [Unknown]
  - Laboratory test abnormal [Unknown]
  - Hepatic steatosis [Unknown]
  - Diastolic dysfunction [Unknown]
  - Ischaemia [Unknown]
